FAERS Safety Report 10574581 (Version 3)
Quarter: 2015Q2

REPORT INFORMATION
  Report Type: Spontaneous
  Country: US (occurrence: US)
  Receive Date: 20141110
  Receipt Date: 20150422
  Transmission Date: 20150821
  Serious: No
  Sender: FDA-Public Use
  Company Number: US-ASTRAZENECA-2014SE83556

PATIENT
  Age: 72 Year
  Sex: Female
  Weight: 65.3 kg

DRUGS (7)
  1. SYMBICORT [Suspect]
     Active Substance: BUDESONIDE\FORMOTEROL FUMARATE DIHYDRATE
     Indication: ASTHMA
     Dosage: 320 MICROGRAMM, TWO PUFFS, TWO TIMES A DAY ( (160MCG/4.5MCG, TWO PUFF, TWO TIMES A DAY))
     Route: 055
     Dates: start: 2014
  2. THEO-DUR [Concomitant]
     Active Substance: THEOPHYLLINE ANHYDROUS
     Indication: ASTHMA
     Route: 048
     Dates: start: 1999
  3. ALBUTEROL SULFATE NEBULIZER [Concomitant]
     Indication: ASTHMA
     Route: 055
  4. SYMBICORT [Suspect]
     Active Substance: BUDESONIDE\FORMOTEROL FUMARATE DIHYDRATE
     Indication: ASTHMA
     Dosage: 160/4.5 MCG, ONE PUFF, TWO TIMES A DAY
     Route: 055
     Dates: start: 20140227
  5. SYMBICORT [Suspect]
     Active Substance: BUDESONIDE\FORMOTEROL FUMARATE DIHYDRATE
     Indication: ASTHMA
     Dosage: 320 MICROGRAMM, ONE PUFF, TWO TIMES A DAY (160MCG/4.5MCG, ONE PUFF, TWO TIMES A DAY)
     Route: 055
     Dates: start: 2014
  6. FORADIL [Concomitant]
     Active Substance: FORMOTEROL FUMARATE
     Indication: ASTHMA
     Route: 055
     Dates: start: 2014
  7. PROAIR INHALER [Concomitant]
     Indication: ASTHMA
     Route: 055
     Dates: start: 2014

REACTIONS (2)
  - Intentional product misuse [Unknown]
  - Vision blurred [Not Recovered/Not Resolved]

NARRATIVE: CASE EVENT DATE: 2014
